FAERS Safety Report 6676415-8 (Version None)
Quarter: 2010Q2

REPORT INFORMATION
  Report Type: 
  Country: None (occurrence: None)
  Receive Date: 20100412
  Receipt Date: 20100406
  Transmission Date: 20101027
  Serious: Yes (Other)
  Sender: FDA-Public Use
  Company Number: US-SANOFI-AVENTIS-2010SA015628

PATIENT
  Age: 58 Year
  Sex: Female

DRUGS (13)
  1. MULTAQ [Suspect]
     Indication: ATRIAL FIBRILLATION
     Route: 048
     Dates: start: 20100228
  2. LEVOTHYROXINE SODIUM [Concomitant]
  3. TRIAMTERENE AND HYDROCHLOROTHIAZIDE [Concomitant]
     Dosage: 37-5-25
  4. COZAAR [Concomitant]
  5. NEBIVOLOL [Concomitant]
  6. METFORMIN HCL [Concomitant]
     Dosage: 500
  7. POTASSIUM [Concomitant]
     Dosage: 20
  8. CRESTOR [Concomitant]
  9. SINGULAIR [Concomitant]
  10. TIOTROPIUM [Concomitant]
  11. ADVAIR DISKUS 100/50 [Concomitant]
     Dosage: 500/50
  12. XOPENEX [Concomitant]
  13. WARFARIN SODIUM [Concomitant]

REACTIONS (3)
  - ASTHMA [None]
  - DYSPNOEA [None]
  - OXYGEN SATURATION [None]
